FAERS Safety Report 11624563 (Version 4)
Quarter: 2016Q1

REPORT INFORMATION
  Report Type: Spontaneous
  Country: US (occurrence: US)
  Receive Date: 20151013
  Receipt Date: 20160216
  Transmission Date: 20160525
  Serious: Yes (Hospitalization)
  Sender: FDA-Public Use
  Company Number: US-ASTRAZENECA-2014SE00190

PATIENT
  Age: 604 Month
  Sex: Female
  Weight: 59 kg

DRUGS (19)
  1. FISH OIL [Concomitant]
     Active Substance: FISH OIL
     Dosage: DAILY
     Dates: start: 20111215
  2. LEXAPRO/ESCITALOPRAM [Concomitant]
     Dates: start: 20111215
  3. CRESTOR [Suspect]
     Active Substance: ROSUVASTATIN CALCIUM
     Indication: BLOOD CHOLESTEROL INCREASED
     Route: 048
     Dates: start: 20140619
  4. NEXIUM [Concomitant]
     Active Substance: ESOMEPRAZOLE MAGNESIUM
  5. TUMS [Concomitant]
     Active Substance: CALCIUM CARBONATE
  6. DIAZEPAM. [Concomitant]
     Active Substance: DIAZEPAM
     Dates: start: 20120521
  7. CRESTOR [Suspect]
     Active Substance: ROSUVASTATIN CALCIUM
     Indication: BLOOD CHOLESTEROL INCREASED
     Route: 048
     Dates: start: 2005
  8. ZANTAC [Concomitant]
     Active Substance: RANITIDINE HYDROCHLORIDE
  9. LEVOTHYROXINE. [Concomitant]
     Active Substance: LEVOTHYROXINE
     Route: 048
     Dates: start: 20130111
  10. CRESTOR [Suspect]
     Active Substance: ROSUVASTATIN CALCIUM
     Indication: BLOOD CHOLESTEROL INCREASED
     Route: 048
     Dates: start: 20150731
  11. LIPITOR [Concomitant]
     Active Substance: ATORVASTATIN CALCIUM
  12. ADVICOR [Concomitant]
     Active Substance: LOVASTATIN\NIACIN
     Dates: start: 2006
  13. CRESTOR [Suspect]
     Active Substance: ROSUVASTATIN CALCIUM
     Indication: BLOOD CHOLESTEROL INCREASED
     Route: 048
     Dates: start: 20110616
  14. PRILOSEC [Concomitant]
     Active Substance: OMEPRAZOLE MAGNESIUM
  15. ROLAIDS [Concomitant]
     Active Substance: CALCIUM CARBONATE\MAGNESIUM HYDROXIDE
  16. VITAMIN B3 [Concomitant]
     Active Substance: NIACIN
  17. LORAZEPAM. [Concomitant]
     Active Substance: LORAZEPAM
     Dates: start: 20120921
  18. ASA [Concomitant]
     Active Substance: ASPIRIN
     Dates: start: 20111215
  19. CODEINE [Concomitant]
     Active Substance: CODEINE

REACTIONS (4)
  - Hypertriglyceridaemia [Unknown]
  - Renal disorder [Unknown]
  - Type 2 diabetes mellitus [Not Recovered/Not Resolved]
  - Hepatic steatosis [Not Recovered/Not Resolved]

NARRATIVE: CASE EVENT DATE: 200601
